FAERS Safety Report 7464039-4 (Version None)
Quarter: 2011Q2

REPORT INFORMATION
  Report Type: 
  Country: None (occurrence: None)
  Receive Date: 20110506
  Receipt Date: 20101203
  Transmission Date: 20111010
  Serious: No
  Sender: FDA-Public Use
  Company Number: US-BAYER-2010-007355

PATIENT
  Age: 57 Year
  Sex: Female

DRUGS (3)
  1. AVELOX [Suspect]
     Indication: SINUSITIS
     Dosage: 400 MG, UNK
     Route: 048
     Dates: start: 20100101
  2. HORMONES NOS [Concomitant]
  3. VITAMINS [Concomitant]

REACTIONS (4)
  - ARTHRALGIA [None]
  - JOINT CREPITATION [None]
  - MUSCLE SPASMS [None]
  - GAIT DISTURBANCE [None]
